FAERS Safety Report 8942257 (Version 1)
Quarter: 2012Q4

REPORT INFORMATION
  Report Type: Spontaneous
  Country: US (occurrence: None)
  Receive Date: 20121129
  Receipt Date: 20121129
  Transmission Date: 20130627
  Serious: Yes (Other)
  Sender: FDA-Public Use
  Company Number: None

PATIENT
  Age: 58 Year
  Sex: Female
  Weight: 65.32 kg

DRUGS (3)
  1. SULFAMETHOXAZOLE + TRIMETHOPRIM [Suspect]
     Indication: SINUS INFECTION
     Route: 048
     Dates: start: 20121113, end: 20121120
  2. MORPHINE [Concomitant]
  3. DEMEROL [Concomitant]

REACTIONS (6)
  - Decreased appetite [None]
  - Diarrhoea [None]
  - Vomiting [None]
  - Pain [None]
  - Muscle spasms [None]
  - Malaise [None]
